FAERS Safety Report 17956343 (Version 5)
Quarter: 2021Q2

REPORT INFORMATION
  Report Type: Spontaneous
  Country: US (occurrence: US)
  Receive Date: 20200629
  Receipt Date: 20210624
  Transmission Date: 20210717
  Serious: Yes (Other)
  Sender: FDA-Public Use
  Company Number: US-GILEAD-2020-0476225

PATIENT
  Age: 31 Year
  Sex: Female
  Weight: 49.89 kg

DRUGS (41)
  1. CARVEDILOL. [Concomitant]
     Active Substance: CARVEDILOL
  2. HYDROXYZINE HCL [Concomitant]
     Active Substance: HYDROXYZINE HYDROCHLORIDE
  3. RENVELA [Concomitant]
     Active Substance: SEVELAMER CARBONATE
  4. AMOXICILLIN. [Concomitant]
     Active Substance: AMOXICILLIN
  5. PREZCOBIX [Concomitant]
     Active Substance: COBICISTAT\DARUNAVIR ETHANOLATE
  6. TRIUMEQ [Concomitant]
     Active Substance: ABACAVIR SULFATE\DOLUTEGRAVIR SODIUM\LAMIVUDINE
  7. LAMIVUDINE. [Concomitant]
     Active Substance: LAMIVUDINE
  8. TRUVADA [Suspect]
     Active Substance: EMTRICITABINE\TENOFOVIR DISOPROXIL FUMARATE
     Indication: HIV INFECTION
     Dosage: UNK
     Route: 048
     Dates: start: 2009, end: 2010
  9. VITAMIN D NOS [Concomitant]
     Active Substance: VITAMIN D NOS
  10. ERGOCALCIFEROL. [Concomitant]
     Active Substance: ERGOCALCIFEROL
  11. ROBITUSSIN COLD [Concomitant]
     Indication: NASOPHARYNGITIS
  12. ALBUTEROL SULFATE. [Concomitant]
     Active Substance: ALBUTEROL SULFATE
  13. SULFATRIM [SULFADIAZINE;TRIMETHOPRIM] [Concomitant]
     Active Substance: SULFADIAZINE\TRIMETHOPRIM
  14. LASIX [Concomitant]
     Active Substance: FUROSEMIDE
  15. HEPARIN [Concomitant]
     Active Substance: HEPARIN SODIUM
  16. PHENOL. [Concomitant]
     Active Substance: PHENOL
     Indication: OROPHARYNGEAL PAIN
  17. CEFUROXIME. [Concomitant]
     Active Substance: CEFUROXIME
  18. OLMESARTAN MEDOXOMIL. [Concomitant]
     Active Substance: OLMESARTAN MEDOXOMIL
  19. ACYCLOVIR SODIUM. [Concomitant]
     Active Substance: ACYCLOVIR SODIUM
     Indication: GENITAL HERPES
  20. COMPLERA [Suspect]
     Active Substance: EMTRICITABINE\RILPIVIRINE HYDROCHLORIDE\TENOFOVIR DISOPROXIL FUMARATE
     Dosage: UNK
     Route: 048
     Dates: start: 20140611, end: 20151214
  21. FERROUS GLUCONATE [Concomitant]
     Active Substance: FERROUS GLUCONATE
  22. VELPHORO [Concomitant]
     Active Substance: SUCROFERRIC OXYHYDROXIDE
  23. HYDROCHLOROTHIAZIDE. [Concomitant]
     Active Substance: HYDROCHLOROTHIAZIDE
  24. VIREAD [Suspect]
     Active Substance: TENOFOVIR DISOPROXIL FUMARATE
     Indication: HIV INFECTION
     Dosage: UNK
     Route: 048
     Dates: start: 200903, end: 201603
  25. GENVOYA [Concomitant]
     Active Substance: COBICISTAT\ELVITEGRAVIR\EMTRICITABINE\TENOFOVIR ALAFENAMIDE FUMARATE
  26. CALCITRIOL. [Concomitant]
     Active Substance: CALCITRIOL
  27. METOPROLOL SUCCINATE. [Concomitant]
     Active Substance: METOPROLOL SUCCINATE
     Indication: BLOOD PRESSURE MEASUREMENT
  28. ACETAMINOPHEN. [Concomitant]
     Active Substance: ACETAMINOPHEN
  29. BACTRIM [Concomitant]
     Active Substance: SULFAMETHOXAZOLE\TRIMETHOPRIM
  30. FOSRENOL [Concomitant]
     Active Substance: LANTHANUM CARBONATE
  31. LORATADINE. [Concomitant]
     Active Substance: LORATADINE
  32. TESSALON [Concomitant]
     Active Substance: BENZONATATE
  33. CITALOPRAM [Concomitant]
     Active Substance: CITALOPRAM HYDROBROMIDE
  34. TRUVADA [Suspect]
     Active Substance: EMTRICITABINE\TENOFOVIR DISOPROXIL FUMARATE
     Dosage: UNK
     Route: 048
     Dates: start: 20130409, end: 20131102
  35. COMPLERA [Suspect]
     Active Substance: EMTRICITABINE\RILPIVIRINE HYDROCHLORIDE\TENOFOVIR DISOPROXIL FUMARATE
     Indication: HIV INFECTION
     Dosage: UNK
     Route: 048
     Dates: start: 2011
  36. INTELENCE [Concomitant]
     Active Substance: ETRAVIRINE
  37. TIVICAY [Concomitant]
     Active Substance: DOLUTEGRAVIR SODIUM
  38. ALBUTEROL [SALBUTAMOL] [Concomitant]
     Active Substance: ALBUTEROL
     Indication: ASTHMA
  39. HYDROCORTISONE. [Concomitant]
     Active Substance: HYDROCORTISONE
  40. LIDOCAINE/PRILOCAINE [Concomitant]
     Active Substance: LIDOCAINE\PRILOCAINE
  41. PROMETHAZINE [Concomitant]
     Active Substance: PROMETHAZINE HYDROCHLORIDE

REACTIONS (11)
  - Loss of personal independence in daily activities [Unknown]
  - End stage renal disease [Not Recovered/Not Resolved]
  - Osteoporosis [Unknown]
  - Nephrogenic anaemia [Unknown]
  - Depression [Not Recovered/Not Resolved]
  - Pain [Not Recovered/Not Resolved]
  - Emotional distress [Not Recovered/Not Resolved]
  - Anxiety [Not Recovered/Not Resolved]
  - Chronic kidney disease [Unknown]
  - Renal failure [Unknown]
  - Skeletal injury [Unknown]

NARRATIVE: CASE EVENT DATE: 201403
